FAERS Safety Report 13400564 (Version 1)
Quarter: 2017Q2

REPORT INFORMATION
  Report Type: Spontaneous
  Country: US (occurrence: US)
  Receive Date: 20170404
  Receipt Date: 20170404
  Transmission Date: 20170830
  Serious: No
  Sender: FDA-Public Use
  Company Number: US-JNJFOC-20170320300

PATIENT
  Age: 25 Year
  Sex: Female
  Weight: 54.43 kg

DRUGS (2)
  1. NIZORAL A-D [Suspect]
     Active Substance: KETOCONAZOLE
     Route: 061
  2. NIZORAL A-D [Suspect]
     Active Substance: KETOCONAZOLE
     Indication: SEBORRHOEIC DERMATITIS
     Dosage: DOSAGE: TEA SPOON SIZE, EVERY 3-4 DAYS
     Route: 061
     Dates: start: 20161207

REACTIONS (2)
  - Stress [Unknown]
  - Drug ineffective [Unknown]
